FAERS Safety Report 13181153 (Version 1)
Quarter: 2017Q1

REPORT INFORMATION
  Report Type: Spontaneous
  Country: US (occurrence: US)
  Receive Date: 20170202
  Receipt Date: 20170202
  Transmission Date: 20170428
  Serious: No
  Sender: FDA-Public Use
  Company Number: US-SMITH AND NEPHEW, INC-2016SMT00827

PATIENT
  Sex: Male
  Weight: 126.98 kg

DRUGS (2)
  1. REGRANEX [Suspect]
     Active Substance: BECAPLERMIN
     Indication: WOUND
     Dosage: UNK UNK, 1X/DAY
     Route: 061
  2. ATENTOLOL [Concomitant]

REACTIONS (2)
  - Off label use [Not Recovered/Not Resolved]
  - Wound haemorrhage [Recovered/Resolved]
